FAERS Safety Report 5120995-0 (Version None)
Quarter: 2006Q4

REPORT INFORMATION
  Report Type: 
  Country: None (occurrence: None)
  Receive Date: 20061002
  Receipt Date: 20060926
  Transmission Date: 20070319
  Serious: Yes (Disabling)
  Sender: FDA-Public Use
  Company Number: DE-2006-028341

PATIENT
  Sex: Male

DRUGS (1)
  1. ULTRAVIST 300 [Suspect]
     Indication: SPINAL MYELOGRAM
     Dosage: 0.5 - 1ML OF 2ML, INTRATHECAL
     Route: 037

REACTIONS (3)
  - PARAPLEGIA [None]
  - POST PROCEDURAL COMPLICATION [None]
  - SENSATION OF HEAVINESS [None]
